FAERS Safety Report 14340909 (Version 2)
Quarter: 2018Q1

REPORT INFORMATION
  Report Type: Spontaneous
  Country: FR (occurrence: FR)
  Receive Date: 20180102
  Receipt Date: 20180104
  Transmission Date: 20180509
  Serious: Yes (Death)
  Sender: FDA-Public Use
  Company Number: FR-CONCORDIA PHARMACEUTICALS INC.-E2B_00009244

PATIENT
  Sex: Female

DRUGS (1)
  1. DIGOXIN. [Suspect]
     Active Substance: DIGOXIN
     Indication: SUPRAVENTRICULAR TACHYCARDIA
     Dosage: INFUSION
     Route: 065

REACTIONS (1)
  - Cardiac arrest [Fatal]
